FAERS Safety Report 17514818 (Version 1)
Quarter: 2020Q1

REPORT INFORMATION
  Report Type: Report from Study
  Country: US (occurrence: US)
  Receive Date: 20200309
  Receipt Date: 20200309
  Transmission Date: 20200409
  Serious: Yes (Other)
  Sender: FDA-Public Use
  Company Number: US-ROCHE-2560556

PATIENT

DRUGS (12)
  1. BENDAMUSTINE [Suspect]
     Active Substance: BENDAMUSTINE
     Indication: LYMPHOCYTIC LYMPHOMA
  2. RITUXIMAB. [Suspect]
     Active Substance: RITUXIMAB
     Indication: CHRONIC LYMPHOCYTIC LEUKAEMIA
  3. RITUXIMAB. [Suspect]
     Active Substance: RITUXIMAB
     Indication: LYMPHOCYTIC LYMPHOMA
  4. OFATUMUMAB [Suspect]
     Active Substance: OFATUMUMAB
     Indication: WALDENSTROM^S MACROGLOBULINAEMIA
  5. RITUXIMAB. [Suspect]
     Active Substance: RITUXIMAB
     Indication: WALDENSTROM^S MACROGLOBULINAEMIA
  6. BENDAMUSTINE [Suspect]
     Active Substance: BENDAMUSTINE
     Indication: CHRONIC LYMPHOCYTIC LEUKAEMIA
  7. OFATUMUMAB [Suspect]
     Active Substance: OFATUMUMAB
     Indication: CHRONIC LYMPHOCYTIC LEUKAEMIA
  8. RITUXIMAB. [Suspect]
     Active Substance: RITUXIMAB
     Indication: NON-HODGKIN^S LYMPHOMA
     Route: 065
  9. BENDAMUSTINE [Suspect]
     Active Substance: BENDAMUSTINE
     Indication: NON-HODGKIN^S LYMPHOMA
     Route: 065
  10. OFATUMUMAB [Suspect]
     Active Substance: OFATUMUMAB
     Indication: LYMPHOCYTIC LYMPHOMA
  11. BENDAMUSTINE [Suspect]
     Active Substance: BENDAMUSTINE
     Indication: WALDENSTROM^S MACROGLOBULINAEMIA
  12. OFATUMUMAB [Suspect]
     Active Substance: OFATUMUMAB
     Indication: NON-HODGKIN^S LYMPHOMA
     Route: 065

REACTIONS (21)
  - Upper respiratory tract infection [Unknown]
  - Pneumonia [Unknown]
  - Sinusitis bacterial [Unknown]
  - Escherichia bacteraemia [Unknown]
  - Escherichia urinary tract infection [Unknown]
  - Neutropenia [Unknown]
  - Streptococcal bacteraemia [Unknown]
  - Pneumocystis jirovecii pneumonia [Unknown]
  - Hypogammaglobulinaemia [Unknown]
  - Cryptococcosis [Unknown]
  - Hepatitis B reactivation [Unknown]
  - Febrile neutropenia [Unknown]
  - Lymphopenia [Unknown]
  - Clostridium difficile colitis [Unknown]
  - Pneumonia staphylococcal [Unknown]
  - Herpes simplex [Unknown]
  - Liver function test abnormal [Unknown]
  - Pneumonia pseudomonal [Unknown]
  - Staphylococcal osteomyelitis [Unknown]
  - Enterococcal bacteraemia [Unknown]
  - Varicella zoster virus infection [Unknown]
